FAERS Safety Report 8815373 (Version 1)
Quarter: 2012Q4

REPORT INFORMATION
  Report Type: 
  Country: US (occurrence: US)
  Receive Date: 20120928
  Receipt Date: 20120928
  Transmission Date: 20130627
  Serious: Yes (Other)
  Sender: FDA-Public Use
  Company Number: US-ASTRAZENECA-2012SE73332

PATIENT
  Sex: Female

DRUGS (1)
  1. PRILOSEC [Suspect]
     Dosage: generic
     Route: 048

REACTIONS (8)
  - Neoplasm malignant [Unknown]
  - Malignant melanoma [Unknown]
  - Lymphoma [Unknown]
  - Gastrooesophageal reflux disease [Unknown]
  - Oesophagitis [Unknown]
  - Dysphagia [Unknown]
  - Increased upper airway secretion [Unknown]
  - Drug ineffective [Unknown]
